FAERS Safety Report 6604277-3 (Version None)
Quarter: 2010Q1

REPORT INFORMATION
  Report Type: 
  Country: None (occurrence: None)
  Receive Date: 20100226
  Receipt Date: 20090728
  Transmission Date: 20100710
  Serious: No
  Sender: FDA-Public Use
  Company Number: A0800301A

PATIENT
  Sex: Male

DRUGS (2)
  1. LAMICTAL CD [Suspect]
     Dosage: 100MG TWICE PER DAY
     Route: 048
  2. UNSPECIFIED MEDICATIONS [Concomitant]

REACTIONS (7)
  - BALANCE DISORDER [None]
  - BRADYCARDIA [None]
  - COORDINATION ABNORMAL [None]
  - DISTURBANCE IN ATTENTION [None]
  - DYSARTHRIA [None]
  - MEMORY IMPAIRMENT [None]
  - VERTIGO [None]
